FAERS Safety Report 21374413 (Version 3)
Quarter: 2023Q1

REPORT INFORMATION
  Report Type: Report from Study
  Country: EG (occurrence: EG)
  Receive Date: 20220926
  Receipt Date: 20230106
  Transmission Date: 20230417
  Serious: Yes (Other)
  Sender: FDA-Public Use
  Company Number: EG-NOVARTISPH-NVSC2022EG015314

PATIENT
  Age: 66 Year
  Sex: Female

DRUGS (5)
  1. KISQALI [Suspect]
     Active Substance: RIBOCICLIB
     Indication: Breast cancer metastatic
     Dosage: 600 MG, QD (3 TABLETS ONCE DAILY)
     Route: 048
     Dates: start: 20211114
  2. KISQALI [Suspect]
     Active Substance: RIBOCICLIB
     Dosage: 200 MG
     Route: 048
  3. KISQALI [Suspect]
     Active Substance: RIBOCICLIB
     Dosage: 200 MG ( 3 TABLETS PER DAY FOR 3 WEEKS THEN ONE WEEK OFF)
     Route: 065
     Dates: start: 202111
  4. FEMARA [Concomitant]
     Active Substance: LETROZOLE
     Indication: Bone cancer
     Dosage: 1 DOSAGE FORM, QD (ONSET DATE: NOVEMBER)
     Route: 065
  5. CALCIUM [Concomitant]
     Active Substance: CALCIUM
     Indication: Bone cancer
     Dosage: UNK UNK, QMO
     Route: 065

REACTIONS (13)
  - Thrombosis [Unknown]
  - White blood cell count decreased [Not Recovered/Not Resolved]
  - Pneumonia [Recovered/Resolved]
  - Nasopharyngitis [Recovered/Resolved]
  - Pyrexia [Recovered/Resolved]
  - Pain [Recovered/Resolved]
  - Burning sensation [Not Recovered/Not Resolved]
  - Skin discolouration [Not Recovered/Not Resolved]
  - Fungal infection [Recovered/Resolved]
  - Dry skin [Not Recovered/Not Resolved]
  - Hypersensitivity [Unknown]
  - Pruritus [Not Recovered/Not Resolved]
  - Pigmentation disorder [Not Recovered/Not Resolved]

NARRATIVE: CASE EVENT DATE: 20211101
